FAERS Safety Report 5653182-8 (Version None)
Quarter: 2008Q1

REPORT INFORMATION
  Report Type: 
  Country: None (occurrence: None)
  Receive Date: 20080131
  Receipt Date: 20071022
  Transmission Date: 20080703
  Serious: No
  Sender: FDA-Public Use
  Company Number: US200710001296

PATIENT
  Age: 26 Year
  Sex: Female
  Weight: 107 kg

DRUGS (7)
  1. BYETTA [Suspect]
     Dosage: 10 UG, 2/D, SUBCUTANEOUS
     Route: 058
     Dates: end: 20070906
  2. DEPO-PROVERA SUSPENSION/INJ [Concomitant]
  3. VYTORIN [Concomitant]
  4. ANTI-SMOKING AGENTS [Concomitant]
  5. FISH OIL (FISH OIL) [Concomitant]
  6. MULTIVITAMIN [Concomitant]
  7. PHENTERMINE [Concomitant]

REACTIONS (3)
  - ACTIVATED PARTIAL THROMBOPLASTIN TIME PROLONGED [None]
  - CHEST PAIN [None]
  - WEIGHT DECREASED [None]
